FAERS Safety Report 21160132 (Version 1)
Quarter: 2022Q3

REPORT INFORMATION
  Report Type: Spontaneous
  Country: US (occurrence: None)
  Receive Date: 20220801
  Receipt Date: 20220801
  Transmission Date: 20221027
  Serious: Yes (Other)
  Sender: FDA-Public Use
  Company Number: None

PATIENT
  Age: 40 Year
  Sex: Female
  Weight: 72 kg

DRUGS (7)
  1. LAGEVRIO [Suspect]
     Active Substance: MOLNUPIRAVIR
     Indication: COVID-19
     Dosage: OTHER QUANTITY : 4 CAPSULE(S);?FREQUENCY : EVERY 12 HOURS;?
     Route: 048
     Dates: start: 20220726, end: 20220726
  2. ALBUTEROL [Concomitant]
     Active Substance: ALBUTEROL
  3. ALBUTEROL [Concomitant]
     Active Substance: ALBUTEROL
  4. DEVICE [Concomitant]
     Active Substance: DEVICE
  5. TOPIRAMATE [Concomitant]
     Active Substance: TOPIRAMATE
  6. SERTRALINE [Concomitant]
     Active Substance: SERTRALINE HYDROCHLORIDE
  7. LEVOTHYROXINE [Concomitant]
     Active Substance: LEVOTHYROXINE

REACTIONS (2)
  - Dyspnoea [None]
  - Chest discomfort [None]

NARRATIVE: CASE EVENT DATE: 20220726
